FAERS Safety Report 12343443 (Version 21)
Quarter: 2020Q4

REPORT INFORMATION
  Report Type: Spontaneous
  Country: US (occurrence: US)
  Receive Date: 20160506
  Receipt Date: 20201103
  Transmission Date: 20210113
  Serious: No
  Sender: FDA-Public Use
  Company Number: US-PFIZER INC-2016203730

PATIENT
  Age: 72 Year
  Sex: Female

DRUGS (6)
  1. FLECTOR [Suspect]
     Active Substance: DICLOFENAC EPOLAMINE
     Indication: ARTHRITIS
  2. FLECTOR [Suspect]
     Active Substance: DICLOFENAC EPOLAMINE
     Indication: OSTEOARTHRITIS
     Dosage: 1 DF, 2X/DAY (1 PATCH ONTO THE SKIN EVERY 12 HOURS)
     Route: 062
     Dates: start: 2010
  3. BIOFREEZE [Concomitant]
     Active Substance: MENTHOL
     Dosage: UNK
  4. FLECTOR [Suspect]
     Active Substance: DICLOFENAC EPOLAMINE
     Indication: SCIATICA
  5. FLECTOR [Suspect]
     Active Substance: DICLOFENAC EPOLAMINE
     Indication: PAIN
  6. FLECTOR [Suspect]
     Active Substance: DICLOFENAC EPOLAMINE
     Indication: BACK PAIN

REACTIONS (12)
  - Illness [Unknown]
  - Gait disturbance [Unknown]
  - Pyrexia [Unknown]
  - Influenza [Unknown]
  - Mobility decreased [Unknown]
  - Fatigue [Unknown]
  - Abdominal pain upper [Unknown]
  - Abdominal discomfort [Unknown]
  - Pain [Unknown]
  - Intentional overdose [Unknown]
  - Drug ineffective [Unknown]
  - Intentional product misuse [Unknown]
